FAERS Safety Report 23932267 (Version 1)
Quarter: 2024Q2

REPORT INFORMATION
  Report Type: Spontaneous
  Country: US (occurrence: US)
  Receive Date: 20240603
  Receipt Date: 20240603
  Transmission Date: 20240716
  Serious: Yes (Life-Threatening, Hospitalization, Other)
  Sender: FDA-Public Use
  Company Number: US-MLMSERVICE-20240513-PI058758-00030-1

PATIENT
  Age: 15 Year
  Sex: Male

DRUGS (1)
  1. IBUPROFEN [Suspect]
     Active Substance: IBUPROFEN
     Indication: Intentional overdose
     Dosage: 80 G, SINGLE (}1000MG/KG)
     Route: 065

REACTIONS (6)
  - Metabolic acidosis [Recovered/Resolved]
  - Depressed level of consciousness [Recovered/Resolved]
  - Circulatory collapse [Recovered/Resolved]
  - Intentional overdose [Recovered/Resolved]
  - Oxygen consumption decreased [Recovered/Resolved]
  - Shock [Recovered/Resolved]
